FAERS Safety Report 6420543-9 (Version None)
Quarter: 2009Q4

REPORT INFORMATION
  Report Type: 
  Country: None (occurrence: None)
  Receive Date: 20091027
  Receipt Date: 20091013
  Transmission Date: 20100525
  Serious: Yes (Life-Threatening)
  Sender: FDA-Public Use
  Company Number: 1000007006

PATIENT
  Age: 30 Year
  Sex: Male

DRUGS (2)
  1. LEXAPRO [Suspect]
     Dosage: 5 MG (5 MG,1 IN 1 D),ORAL
     Route: 048
     Dates: start: 20070706
  2. XANAX [Suspect]
     Dosage: 0.75 MG (0.25 MG,3 IN 1 D),ORAL
     Route: 048
     Dates: start: 20070706

REACTIONS (3)
  - GENERAL PHYSICAL HEALTH DETERIORATION [None]
  - MENTAL STATUS CHANGES [None]
  - SUICIDE ATTEMPT [None]
